FAERS Safety Report 24992670 (Version 1)
Quarter: 2025Q1

REPORT INFORMATION
  Report Type: Report from Study
  Country: CL (occurrence: CL)
  Receive Date: 20250221
  Receipt Date: 20250221
  Transmission Date: 20250409
  Serious: Yes (Other)
  Sender: JOHNSON AND JOHNSON
  Company Number: CL-JNJFOC-20250239486

PATIENT
  Age: 74 Year
  Sex: Female

DRUGS (1)
  1. SIMPONI [Suspect]
     Active Substance: GOLIMUMAB
     Indication: Rheumatoid arthritis
     Dates: start: 20240710

REACTIONS (7)
  - Skin cancer [Unknown]
  - Hernia [Recovering/Resolving]
  - Abdominal adhesions [Recovering/Resolving]
  - Muscle atrophy [Unknown]
  - Underweight [Unknown]
  - Bone pain [Unknown]
  - Gastrointestinal infection [Unknown]
